FAERS Safety Report 4602064-9 (Version None)
Quarter: 2005Q1

REPORT INFORMATION
  Report Type: 
  Country: None (occurrence: None)
  Receive Date: 20050308
  Receipt Date: 20050302
  Transmission Date: 20050727
  Serious: Yes (Life-Threatening, Hospitalization)
  Sender: FDA-Public Use
  Company Number: DE-MERCK-0503DEU00027

PATIENT
  Age: 63 Year
  Sex: Male
  Weight: 88 kg

DRUGS (3)
  1. VIOXX [Suspect]
     Indication: ARTHRALGIA
     Route: 048
     Dates: start: 20000711, end: 20011001
  2. VIOXX [Suspect]
     Indication: BONE PAIN
     Route: 048
     Dates: start: 20000711, end: 20011001
  3. ALLOPURINOL [Concomitant]
     Indication: HYPERURICAEMIA
     Route: 048
     Dates: start: 20000701

REACTIONS (2)
  - CARDIAC ARREST [None]
  - HEART RATE DECREASED [None]
